FAERS Safety Report 4626902-9 (Version None)
Quarter: 2005Q2

REPORT INFORMATION
  Report Type: 
  Country: None (occurrence: None)
  Receive Date: 20050405
  Receipt Date: 20050201
  Transmission Date: 20051028
  Serious: Yes (Other)
  Sender: FDA-Public Use
  Company Number: BE-MERCK-0502BEL00008

PATIENT
  Sex: Female

DRUGS (1)
  1. SINGULAIR [Suspect]
     Route: 048
     Dates: start: 20040311, end: 20040311

REACTIONS (4)
  - INTENTIONAL MISUSE [None]
  - MALAISE [None]
  - SUICIDE ATTEMPT [None]
  - VOMITING [None]
